FAERS Safety Report 7737768-2 (Version None)
Quarter: 2011Q3

REPORT INFORMATION
  Report Type: 
  Country: None (occurrence: None)
  Receive Date: 20110906
  Receipt Date: 20110823
  Transmission Date: 20111222
  Serious: Yes (Hospitalization, Other)
  Sender: FDA-Public Use
  Company Number: UTC-009212

PATIENT
  Age: 43 Year
  Sex: Female
  Weight: 91.8 kg

DRUGS (4)
  1. REMODULIN [Suspect]
     Indication: PULMONARY ARTERIAL HYPERTENSION
     Dosage: 100.8 UG/KG (0.07 UG/KG, 1 IN 1 MIN), SUBCUTANEOUS
     Route: 058
     Dates: start: 20110110
  2. REVATIO [Concomitant]
  3. LETAIRIS [Concomitant]
  4. DIRETICS (DIURETICS) [Concomitant]

REACTIONS (4)
  - CELLULITIS [None]
  - CARDIAC ARREST [None]
  - SYNCOPE [None]
  - GASTROENTERITIS [None]
